FAERS Safety Report 7344537-4 (Version None)
Quarter: 2011Q1

REPORT INFORMATION
  Report Type: 
  Country: None (occurrence: None)
  Receive Date: 20110310
  Receipt Date: 20110224
  Transmission Date: 20110831
  Serious: Yes (Life-Threatening, Hospitalization, Other)
  Sender: FDA-Public Use
  Company Number: JP-AMGEN-JPNSP2011005679

PATIENT
  Age: 72 Year
  Sex: Female
  Weight: 50 kg

DRUGS (10)
  1. PREDNISOLONE [Concomitant]
     Indication: PNEUMONIA
     Dosage: 5 MG, 1X/DAY
     Route: 048
  2. LOXONIN                            /00890702/ [Concomitant]
     Indication: RHEUMATOID ARTHRITIS
     Dosage: 180 MG, 3X/DAY
     Route: 048
     Dates: start: 20100608
  3. OPALMON [Concomitant]
     Indication: RHEUMATOID ARTHRITIS
     Dosage: UNKNOWN
     Route: 048
     Dates: start: 20100727
  4. BAKTAR [Concomitant]
     Indication: PNEUMONIA
     Dosage: 1 DF, 1X/DAY
     Route: 048
  5. ENBREL [Suspect]
     Dosage: 50 MG, WEEKLY
     Route: 058
     Dates: start: 20110124
  6. ZANTAC                             /00550802/ [Concomitant]
     Indication: RHEUMATOID ARTHRITIS
     Dosage: 150 MG, 1X/DAY
     Route: 048
     Dates: start: 20100608
  7. PREDNISOLONE [Concomitant]
     Indication: PNEUMONIA
     Dosage: 4 MG, 1X/DAY
     Route: 048
  8. ENBREL [Suspect]
     Indication: RHEUMATOID ARTHRITIS
     Dosage: 25 MG, 2X/WEEK
     Route: 058
     Dates: start: 20100610, end: 20110120
  9. PREDNISOLONE [Concomitant]
     Dosage: 9 MG, 1X/DAY
     Dates: start: 20100525
  10. ONE-ALPHA [Concomitant]
     Indication: OSTEOPOROSIS
     Dosage: UNKNOWN
     Route: 048
     Dates: start: 20100831

REACTIONS (2)
  - BLOOD SODIUM DECREASED [None]
  - LUMBAR SPINAL STENOSIS [None]
